FAERS Safety Report 13850795 (Version 1)
Quarter: 2017Q3

REPORT INFORMATION
  Report Type: Spontaneous
  Country: US (occurrence: US)
  Receive Date: 20170809
  Receipt Date: 20170809
  Transmission Date: 20171127
  Serious: Yes (Other)
  Sender: FDA-Public Use
  Company Number: US-GLAXOSMITHKLINE-US2017GSK123066

PATIENT
  Age: 86 Year
  Sex: Male

DRUGS (2)
  1. VENTOLIN HFA [Suspect]
     Active Substance: ALBUTEROL SULFATE
     Dosage: 2 PUFF(S), EVERY 6 HOURS
     Route: 055
  2. VENTOLIN HFA [Suspect]
     Active Substance: ALBUTEROL SULFATE
     Indication: DYSPNOEA
     Dosage: 2 PUFF(S), PRN
     Route: 055
     Dates: start: 201704

REACTIONS (5)
  - Chest discomfort [Recovering/Resolving]
  - Lower respiratory tract infection [Recovering/Resolving]
  - Drug dose omission [Unknown]
  - Increased bronchial secretion [Recovering/Resolving]
  - Sputum discoloured [Recovering/Resolving]

NARRATIVE: CASE EVENT DATE: 20170706
